FAERS Safety Report 16846063 (Version 2)
Quarter: 2019Q4

REPORT INFORMATION
  Report Type: Spontaneous
  Country: US (occurrence: US)
  Receive Date: 20190924
  Receipt Date: 20191001
  Transmission Date: 20200122
  Serious: Yes (Hospitalization, Other)
  Sender: FDA-Public Use
  Company Number: PHEH2019US039299

PATIENT
  Age: 43 Year
  Sex: Female

DRUGS (1)
  1. TREPROSTINIL. [Suspect]
     Active Substance: TREPROSTINIL
     Indication: PULMONARY ARTERIAL HYPERTENSION
     Dosage: UNK (8 NG/KG/MIN) (THROUGH PERIPHERAL ACCESS)
     Route: 042
     Dates: start: 20190826

REACTIONS (2)
  - Limb injury [Unknown]
  - Device dislocation [Unknown]

NARRATIVE: CASE EVENT DATE: 20190915
